FAERS Safety Report 7617115-7 (Version None)
Quarter: 2011Q3

REPORT INFORMATION
  Report Type: 
  Country: None (occurrence: None)
  Receive Date: 20110718
  Receipt Date: 20110712
  Transmission Date: 20111222
  Serious: Yes (Death, Life-Threatening, Hospitalization)
  Sender: FDA-Public Use
  Company Number: CN-TEVA-289857ISR

PATIENT
  Sex: Male
  Weight: 69 kg

DRUGS (7)
  1. DEXAMETHASONE [Suspect]
     Indication: MULTIPLE MYELOMA
     Dates: start: 20110314, end: 20110425
  2. DEXAMETHASONE [Suspect]
     Dosage: 4.8 15 AND 22
     Dates: start: 20110620, end: 20110628
  3. LENALIDOMIDE [Suspect]
     Dosage: D1-21 OUT OF 28
     Route: 048
     Dates: start: 20110620, end: 20110628
  4. LENALIDOMIDE [Suspect]
     Dosage: 10 MILLIGRAM;
     Dates: start: 20110517
  5. DEXAMETHASONE [Suspect]
     Dosage: 20 MILLIGRAM;
     Dates: start: 20110517
  6. ASPIRIN [Concomitant]
     Indication: THROMBOSIS PROPHYLAXIS
     Dosage: DOSE: 0.1 GM
     Route: 048
     Dates: start: 20110314, end: 20110629
  7. LENALIDOMIDE [Suspect]
     Indication: MULTIPLE MYELOMA
     Dosage: D1-21 OUT OF 28
     Route: 048
     Dates: start: 20110314, end: 20110628

REACTIONS (3)
  - LUNG INFECTION [None]
  - RENAL FAILURE CHRONIC [None]
  - THROMBOCYTOPENIA [None]
